FAERS Safety Report 8417300-0 (Version None)
Quarter: 2012Q2

REPORT INFORMATION
  Report Type: 
  Country: None (occurrence: None)
  Receive Date: 20120606
  Receipt Date: 20120524
  Transmission Date: 20120825
  Serious: Yes (Other)
  Sender: FDA-Public Use
  Company Number: ES-ELI_LILLY_AND_COMPANY-ES201205008862

PATIENT
  Age: 36 Year
  Sex: Male
  Weight: 50 kg

DRUGS (2)
  1. ALIMTA [Suspect]
     Indication: LUNG NEOPLASM MALIGNANT
     Dosage: UNK
     Dates: start: 20120523
  2. DEXAMETHASONE [Concomitant]
     Dosage: 4 MG, QD
     Route: 048

REACTIONS (1)
  - HAEMOPTYSIS [None]
